FAERS Safety Report 15934616 (Version 2)
Quarter: 2019Q1

REPORT INFORMATION
  Report Type: Spontaneous
  Country: US (occurrence: US)
  Receive Date: 20190207
  Receipt Date: 20190228
  Transmission Date: 20190417
  Serious: Yes (Other)
  Sender: FDA-Public Use
  Company Number: US-ASTRAZENECA-2018SF34485

PATIENT
  Sex: Female

DRUGS (13)
  1. ADVAIR HFA [Concomitant]
     Active Substance: FLUTICASONE PROPIONATE\SALMETEROL XINAFOATE
  2. FLUTICASONE. [Concomitant]
     Active Substance: FLUTICASONE
  3. PRILOSEC [Suspect]
     Active Substance: OMEPRAZOLE MAGNESIUM
     Route: 048
     Dates: start: 200909, end: 201005
  4. FLUTICASONE. [Concomitant]
     Active Substance: FLUTICASONE
  5. CETIRIZINE [Concomitant]
     Active Substance: CETIRIZINE HYDROCHLORIDE
  6. ALBUTEROL. [Concomitant]
     Active Substance: ALBUTEROL
  7. NEXIUM [Suspect]
     Active Substance: ESOMEPRAZOLE MAGNESIUM
     Route: 048
     Dates: start: 200909, end: 201005
  8. AZITHROMYCIN ANHYDROUS. [Concomitant]
     Active Substance: AZITHROMYCIN ANHYDROUS
  9. PROTONIX [Suspect]
     Active Substance: PANTOPRAZOLE SODIUM
     Route: 065
     Dates: start: 20100303, end: 20100401
  10. CIPRODEX [Concomitant]
     Active Substance: CIPROFLOXACIN HYDROCHLORIDE\DEXAMETHASONE
  11. NEXIUM [Suspect]
     Active Substance: ESOMEPRAZOLE MAGNESIUM
     Route: 048
     Dates: start: 20100507, end: 20110309
  12. ALPRAZOLAM. [Concomitant]
     Active Substance: ALPRAZOLAM
  13. PROTONIX [Suspect]
     Active Substance: PANTOPRAZOLE SODIUM
     Route: 065
     Dates: start: 200909, end: 201005

REACTIONS (4)
  - Acute kidney injury [Unknown]
  - Chronic kidney disease [Unknown]
  - Tubulointerstitial nephritis [Unknown]
  - Renal injury [Unknown]
